FAERS Safety Report 9923960 (Version 2)
Quarter: 2014Q1

REPORT INFORMATION
  Report Type: Spontaneous
  Country: US (occurrence: US)
  Receive Date: 20140225
  Receipt Date: 20140225
  Transmission Date: 20141002
  Serious: No
  Sender: FDA-Public Use
  Company Number: US-GILEAD-2008-0015360

PATIENT
  Sex: Male

DRUGS (1)
  1. HEPSERA [Suspect]
     Route: 048
     Dates: end: 20070307

REACTIONS (5)
  - Prostatitis [Recovered/Resolved]
  - Renal pain [Recovered/Resolved]
  - Protein urine present [Recovered/Resolved]
  - Urinary sediment present [Recovered/Resolved]
  - Glucose urine present [Recovered/Resolved]
